FAERS Safety Report 6156417-0 (Version None)
Quarter: 2009Q2

REPORT INFORMATION
  Report Type: 
  Country: None (occurrence: None)
  Receive Date: 20090416
  Receipt Date: 20090409
  Transmission Date: 20091009
  Serious: Yes (Hospitalization)
  Sender: FDA-Public Use
  Company Number: FR-JNJFOC-20090403050

PATIENT
  Age: 43 Year
  Sex: Female

DRUGS (5)
  1. DURAGESIC-100 [Suspect]
     Indication: DRUG USE FOR UNKNOWN INDICATION
     Route: 062
  2. THEOSTAT [Suspect]
     Indication: DRUG USE FOR UNKNOWN INDICATION
     Route: 048
  3. LYRICA [Suspect]
     Indication: DRUG USE FOR UNKNOWN INDICATION
     Route: 048
  4. SUBCUVIA [Suspect]
     Route: 058
  5. SUBCUVIA [Suspect]
     Indication: IMMUNODEFICIENCY
     Route: 058

REACTIONS (2)
  - CONFUSIONAL STATE [None]
  - DYSKINESIA [None]
